FAERS Safety Report 19088081 (Version 1)
Quarter: 2021Q2

REPORT INFORMATION
  Report Type: Report from Study
  Country: None (occurrence: US)
  Receive Date: 20210402
  Receipt Date: 20210402
  Transmission Date: 20210717
  Serious: Yes (Hospitalization, Other)
  Sender: FDA-Public Use
  Company Number: US-ABBVIE-21K-163-3812927-00

PATIENT
  Age: 30 Year
  Sex: Male

DRUGS (3)
  1. HUMIRA [Suspect]
     Active Substance: ADALIMUMAB
     Indication: CROHN^S DISEASE
     Dosage: CITRATE FREE
     Route: 058
     Dates: start: 201810, end: 202103
  2. HUMIRA [Suspect]
     Active Substance: ADALIMUMAB
     Route: 058
  3. IRON [Concomitant]
     Active Substance: IRON
     Indication: PRODUCT USED FOR UNKNOWN INDICATION

REACTIONS (9)
  - Protein total decreased [Recovered/Resolved]
  - Inflammatory marker increased [Recovered/Resolved]
  - Injection site swelling [Not Recovered/Not Resolved]
  - Blood albumin decreased [Recovered/Resolved]
  - Abdominal distension [Recovered/Resolved]
  - Drug ineffective [Unknown]
  - Stenosis [Recovering/Resolving]
  - Gastric disorder [Unknown]
  - Crohn^s disease [Unknown]

NARRATIVE: CASE EVENT DATE: 201810
